FAERS Safety Report 15555500 (Version 1)
Quarter: 2018Q4

REPORT INFORMATION
  Report Type: Report from Study
  Country: PL (occurrence: PL)
  Receive Date: 20181026
  Receipt Date: 20181026
  Transmission Date: 20190205
  Serious: Yes (Other)
  Sender: FDA-Public Use
  Company Number: PL-MYLANLABS-2018M1078114

PATIENT
  Age: 43 Year
  Sex: Male

DRUGS (5)
  1. ETOPOSIDE. [Suspect]
     Active Substance: ETOPOSIDE
     Indication: ANAPLASTIC LARGE-CELL LYMPHOMA
     Dosage: RECEIVED VIA DRIP PUMPS
     Route: 065
  2. PREDNISONE. [Suspect]
     Active Substance: PREDNISONE
     Indication: ANAPLASTIC LARGE-CELL LYMPHOMA
     Route: 048
  3. VINCRISTINE [Suspect]
     Active Substance: VINCRISTINE
     Indication: ANAPLASTIC LARGE-CELL LYMPHOMA
     Dosage: RECEIVED VIA INFUSION PUMPS
     Route: 065
  4. CYCLOPHOSPHAMIDE. [Suspect]
     Active Substance: CYCLOPHOSPHAMIDE
     Indication: ANAPLASTIC LARGE-CELL LYMPHOMA
     Dosage: INFUSION. RECEIVED VIA DRIP PUMPS
     Route: 042
  5. DOXORUBICIN [Suspect]
     Active Substance: DOXORUBICIN
     Indication: ANAPLASTIC LARGE-CELL LYMPHOMA
     Dosage: RECEIVED VIA INFUSION PUMPS
     Route: 065

REACTIONS (1)
  - Tumour lysis syndrome [Recovering/Resolving]
